FAERS Safety Report 7561219-4 (Version None)
Quarter: 2011Q2

REPORT INFORMATION
  Report Type: 
  Country: None (occurrence: None)
  Receive Date: 20110621
  Receipt Date: 20100618
  Transmission Date: 20111010
  Serious: No
  Sender: FDA-Public Use
  Company Number: US-ASTRAZENECA-2010SE28635

PATIENT
  Age: 85 Year
  Sex: Female
  Weight: 45.4 kg

DRUGS (2)
  1. PULMICORT FLEXHALER [Suspect]
     Dosage: TWO TIMES A DAY
     Route: 055
  2. CELEXA [Concomitant]

REACTIONS (2)
  - TREMOR [None]
  - FEELING JITTERY [None]
